FAERS Safety Report 5312240-8 (Version None)
Quarter: 2007Q2

REPORT INFORMATION
  Report Type: 
  Country: None (occurrence: None)
  Receive Date: 20070430
  Receipt Date: 20061003
  Transmission Date: 20071010
  Serious: Yes (Other)
  Sender: FDA-Public Use
  Company Number: 2006UW19202

PATIENT
  Age: 86 Year
  Sex: Female
  Weight: 50.8 kg

DRUGS (9)
  1. NEXIUM [Suspect]
     Indication: DYSPEPSIA
     Route: 048
     Dates: start: 20060801
  2. TOPROL-XL [Concomitant]
  3. PREDNISONE TAB [Concomitant]
  4. M.V.I. [Concomitant]
  5. CALCIUM CHLORIDE [Concomitant]
  6. ACTINAL [Concomitant]
  7. PREMARIN [Concomitant]
  8. VERAPAMIL [Concomitant]
  9. LASIX [Concomitant]

REACTIONS (2)
  - VISION BLURRED [None]
  - VISUAL DISTURBANCE [None]
